FAERS Safety Report 11819427 (Version 1)
Quarter: 2015Q4

REPORT INFORMATION
  Report Type: Spontaneous
  Country: US (occurrence: US)
  Receive Date: 20151210
  Receipt Date: 20151210
  Transmission Date: 20160305
  Serious: Yes (Other)
  Sender: FDA-Public Use
  Company Number: US-JNJFOC-20151100821

PATIENT
  Sex: Male

DRUGS (3)
  1. RISPERDAL [Suspect]
     Active Substance: RISPERIDONE
     Indication: PSYCHOTIC DISORDER
     Dosage: 1 MG AND 2 MG
     Route: 048
     Dates: end: 20120727
  2. RISPERDAL [Suspect]
     Active Substance: RISPERIDONE
     Indication: MUSCLE RIGIDITY
     Dosage: 1 MG AND 2 MG
     Route: 048
     Dates: end: 20120727
  3. RISPERDAL [Suspect]
     Active Substance: RISPERIDONE
     Indication: AFFECTIVE DISORDER
     Dosage: 1 MG AND 2 MG
     Route: 048
     Dates: end: 20120727

REACTIONS (3)
  - Vision blurred [Unknown]
  - Gynaecomastia [Unknown]
  - Emotional disorder [Unknown]

NARRATIVE: CASE EVENT DATE: 2012
